FAERS Safety Report 13509249 (Version 1)
Quarter: 2017Q2

REPORT INFORMATION
  Report Type: Spontaneous
  Country: HU (occurrence: HU)
  Receive Date: 20170503
  Receipt Date: 20170503
  Transmission Date: 20170830
  Serious: Yes (Other)
  Sender: FDA-Public Use
  Company Number: HU-PFIZER INC-2017184360

PATIENT
  Age: 56 Year
  Sex: Female

DRUGS (4)
  1. SUTENT [Suspect]
     Active Substance: SUNITINIB MALATE
     Dosage: 12.5 MG, 1X/DAY
     Route: 048
     Dates: start: 201703, end: 20170411
  2. SUTENT [Suspect]
     Active Substance: SUNITINIB MALATE
     Dosage: 25 MG, 1X/DAY
     Route: 048
     Dates: start: 20170224, end: 201703
  3. CONCOR [Concomitant]
     Active Substance: BISOPROLOL FUMARATE
     Indication: BLOOD PRESSURE FLUCTUATION
     Route: 048
  4. SUTENT [Suspect]
     Active Substance: SUNITINIB MALATE
     Indication: RENAL CANCER
     Dosage: 50 MG, 1X/DAY
     Route: 048
     Dates: start: 201702, end: 20170224

REACTIONS (10)
  - Diarrhoea [Unknown]
  - Blood urine present [Unknown]
  - Blood pressure fluctuation [Recovered/Resolved]
  - Ear discomfort [Unknown]
  - Back pain [Unknown]
  - Haematochezia [Recovering/Resolving]
  - Vitreous floaters [Unknown]
  - Chills [Unknown]
  - Purpura [Unknown]
  - Palatal disorder [Recovered/Resolved]

NARRATIVE: CASE EVENT DATE: 2017
